FAERS Safety Report 5083577-5 (Version None)
Quarter: 2006Q3

REPORT INFORMATION
  Report Type: 
  Country: None (occurrence: None)
  Receive Date: 20060818
  Receipt Date: 20060816
  Transmission Date: 20061208
  Serious: Yes (Other)
  Sender: FDA-Public Use
  Company Number: US-GLAXOSMITHKLINE-A0616932A

PATIENT
  Age: 24 Year
  Sex: Female

DRUGS (2)
  1. LAMICTAL [Suspect]
     Indication: BIPOLAR DISORDER
     Dosage: 250MG PER DAY
     Route: 048
  2. ADDERALL 10 [Concomitant]

REACTIONS (6)
  - DEPRESSION [None]
  - EYE PAIN [None]
  - HYPOAESTHESIA FACIAL [None]
  - PHOTOSENSITIVITY REACTION [None]
  - VISION BLURRED [None]
  - VISUAL ACUITY REDUCED [None]
